FAERS Safety Report 5145236-X (Version None)
Quarter: 2006Q4

REPORT INFORMATION
  Report Type: 
  Country: None (occurrence: None)
  Receive Date: 20061107
  Receipt Date: 20061026
  Transmission Date: 20070319
  Serious: Yes (Death)
  Sender: FDA-Public Use
  Company Number: GB-ROCHE-468917

PATIENT
  Age: 56 Year
  Weight: 127 kg

DRUGS (5)
  1. ORLISTAT [Suspect]
     Indication: OBESITY
     Route: 048
     Dates: start: 20040519, end: 20060928
  2. AMLODIPINE [Concomitant]
     Indication: HYPERTENSION
     Route: 048
  3. BENDROFLUAZIDE [Concomitant]
     Indication: HYPERTENSION
     Route: 048
  4. DOXAZOSIN MESYLATE [Concomitant]
     Indication: HYPERTENSION
     Route: 048
  5. LOSARTAN POSTASSIUM [Concomitant]
     Indication: HYPERTENSION
     Route: 048

REACTIONS (1)
  - SUDDEN DEATH [None]
